FAERS Safety Report 5189538-X (Version None)
Quarter: 2006Q4

REPORT INFORMATION
  Report Type: 
  Country: None (occurrence: None)
  Receive Date: 20061218
  Receipt Date: 20061205
  Transmission Date: 20070319
  Serious: Yes (Death, Other)
  Sender: FDA-Public Use
  Company Number: 2006150839

PATIENT
  Age: 86 Year
  Sex: Female
  Weight: 70.7611 kg

DRUGS (9)
  1. SUTENT [Suspect]
     Indication: METASTATIC RENAL CELL CARCINOMA
     Dosage: 25 MG (25 MG, 1 IN 1D)
     Dates: end: 20061101
  2. WARFARIN SODIUM [Concomitant]
  3. TRICOR [Concomitant]
  4. CLONIDINE [Concomitant]
  5. COMPAZINE [Concomitant]
  6. LOPERAMIDE HCL [Concomitant]
  7. LASIX [Concomitant]
  8. METOPROLOL TARTRATE [Concomitant]
  9. ASPIRIN [Concomitant]

REACTIONS (6)
  - BLOOD CALCIUM DECREASED [None]
  - BLOOD CHLORIDE INCREASED [None]
  - BLOOD COPPER INCREASED [None]
  - BLOOD CREATININE INCREASED [None]
  - BLOOD GLUCOSE INCREASED [None]
  - PLATELET COUNT DECREASED [None]
